FAERS Safety Report 4608793-5 (Version None)
Quarter: 2005Q1

REPORT INFORMATION
  Report Type: 
  Country: None (occurrence: None)
  Receive Date: 20050309
  Receipt Date: 20050222
  Transmission Date: 20050727
  Serious: Yes (Other)
  Sender: FDA-Public Use
  Company Number: 2005-UK-00296UK

PATIENT
  Age: 63 Year
  Sex: Male

DRUGS (5)
  1. MOBIC [Suspect]
     Indication: ARTHRITIS
     Dosage: 7.5 MG (7.5 MG_, PO
     Route: 048
     Dates: start: 20050121, end: 20050123
  2. ACETAMINOPHEN [Concomitant]
  3. EPILIM EC (VALPROATE SODIUM) [Concomitant]
  4. TRAMADOL HCL [Concomitant]
  5. OMEPRAZOLE [Concomitant]

REACTIONS (2)
  - DYSTONIA [None]
  - INSOMNIA [None]
